FAERS Safety Report 20082576 (Version 2)
Quarter: 2021Q4

REPORT INFORMATION
  Report Type: Spontaneous
  Country: DE (occurrence: DE)
  Receive Date: 20211117
  Receipt Date: 20211123
  Transmission Date: 20220303
  Serious: Yes (Hospitalization)
  Sender: FDA-Public Use
  Company Number: DE-ADRED-07214-02

PATIENT
  Age: 60 Year
  Sex: Female

DRUGS (13)
  1. ETOPOSIDE [Suspect]
     Active Substance: ETOPOSIDE
     Indication: Product used for unknown indication
     Dosage: SCHEMA
  2. CARBOPLATIN [Suspect]
     Active Substance: CARBOPLATIN
     Indication: Product used for unknown indication
     Dosage: SCHEMA
  3. ATEZOLIZUMAB [Suspect]
     Active Substance: ATEZOLIZUMAB
     Indication: Product used for unknown indication
     Dosage: SCHEMA
  4. BISOPROLOL [Concomitant]
     Active Substance: BISOPROLOL
     Dosage: 2.5 MILLIGRAM, QD (2.5 MG, 1-0-0-0)
  5. TOLVAPTAN [Concomitant]
     Active Substance: TOLVAPTAN
     Dosage: 7.5 MILLIGRAM, QD (7.5 MG, 1-0-0-0)
  6. LEVETIRACETAM [Concomitant]
     Active Substance: LEVETIRACETAM
     Dosage: 1.5 GRAM, BID (1.5 G, 1-0-1-0)
  7. PREDNISOLON                        /00016201/ [Concomitant]
     Dosage: 15 MILLIGRAM (15 MG, SCHEMA)
  8. LORAZEPAM [Concomitant]
     Active Substance: LORAZEPAM
     Dosage: 1 MILLIGRAM, QD (1 MG, 0-0-1-0)
  9. PANTOPRAZOLE [Concomitant]
     Active Substance: PANTOPRAZOLE
     Dosage: 20 MILLIGRAM, QD (20 MG, 1-0-0-0)
  10. LACOSAMIDE [Concomitant]
     Active Substance: LACOSAMIDE
     Dosage: 200 MILLIGRAM, BID (200 MG, 1-0-1-0)
  11. ACETYLSALICYLIC ACID [Concomitant]
     Dosage: 100 MILLIGRAM, QD (100 MG, 1-0-0-0)
  12. RISPERIDONE [Concomitant]
     Active Substance: RISPERIDONE
     Dosage: 0.5 MILLIGRAM, BID (0.5 MG, 1-0-1-0)
  13. KALIUM                             /00031401/ [Concomitant]
     Dosage: SCHEMA

REACTIONS (6)
  - Condition aggravated [Unknown]
  - Muscular weakness [Unknown]
  - Renal impairment [Unknown]
  - Anaemia [Unknown]
  - Polyuria [Unknown]
  - General physical health deterioration [Unknown]
